FAERS Safety Report 7318973-6 (Version None)
Quarter: 2011Q1

REPORT INFORMATION
  Report Type: 
  Country: None (occurrence: None)
  Receive Date: 20110228
  Receipt Date: 20110215
  Transmission Date: 20110831
  Serious: Yes (Other)
  Sender: FDA-Public Use
  Company Number: KR-ELI_LILLY_AND_COMPANY-KR201102004460

PATIENT
  Age: 31 Year
  Sex: Female

DRUGS (7)
  1. ZYPREXA [Suspect]
     Dosage: 20 MG, DAILY (1/D)
     Dates: start: 20080101
  2. VALPROATE SODIUM [Concomitant]
     Dosage: 750 MG, UNK
     Dates: start: 20080101, end: 20080101
  3. VALPROATE SODIUM [Concomitant]
     Dosage: 1000 MG, UNK
     Dates: start: 20080101, end: 20080101
  4. ZYPREXA [Suspect]
     Dosage: 20 MG, DAILY (1/D)
     Dates: start: 20080101, end: 20080101
  5. CLOZAPINE [Concomitant]
     Dosage: 85 MG, UNK
     Dates: start: 20081113, end: 20081101
  6. ZYPREXA [Suspect]
     Dosage: 10 MG, DAILY (1/D)
     Dates: start: 20080101, end: 20080101
  7. HALOPERIDOL [Concomitant]

REACTIONS (4)
  - DRUG INEFFECTIVE [None]
  - GRAND MAL CONVULSION [None]
  - DRUG INTERACTION [None]
  - NEUTROPENIA [None]
